FAERS Safety Report 17011884 (Version 2)
Quarter: 2019Q4

REPORT INFORMATION
  Report Type: Spontaneous
  Country: PT (occurrence: PT)
  Receive Date: 20191108
  Receipt Date: 20191203
  Transmission Date: 20200122
  Serious: Yes (Hospitalization, Other)
  Sender: FDA-Public Use
  Company Number: PT-PFIZER INC-2019480402

PATIENT
  Age: 78 Year
  Sex: Male

DRUGS (1)
  1. AMIODARONE HCL [Suspect]
     Active Substance: AMIODARONE HYDROCHLORIDE
     Indication: ATRIAL FIBRILLATION
     Dosage: UNK

REACTIONS (16)
  - Orthopnoea [Unknown]
  - Chest pain [Unknown]
  - Electrocardiogram low voltage [Unknown]
  - Thyroid function test abnormal [Recovered/Resolved]
  - Gastrointestinal angiodysplasia [Unknown]
  - Jugular vein distension [Unknown]
  - Dyspnoea [Unknown]
  - Hypophonesis [Unknown]
  - Rales [Unknown]
  - Cardiac tamponade [Unknown]
  - Gastritis [Unknown]
  - Hypothyroidism [Unknown]
  - Pleural effusion [Unknown]
  - Condition aggravated [Unknown]
  - Pericardial effusion [Recovered/Resolved]
  - Cardiothoracic ratio increased [Unknown]
